FAERS Safety Report 8120208-1 (Version None)
Quarter: 2012Q1

REPORT INFORMATION
  Report Type: 
  Country: None (occurrence: None)
  Receive Date: 20120207
  Receipt Date: 20120201
  Transmission Date: 20120608
  Serious: Yes (Hospitalization)
  Sender: FDA-Public Use
  Company Number: PHHO2009US15006

PATIENT
  Sex: Male
  Weight: 77 kg

DRUGS (3)
  1. TACROLIMUS [Suspect]
     Indication: LIVER TRANSPLANT
     Dosage: UNK
     Route: 048
     Dates: start: 20081106
  2. ZORTRESS [Suspect]
     Dosage: 7 MG, BID
     Route: 048
     Dates: end: 20100511
  3. ZORTRESS [Suspect]
     Indication: LIVER TRANSPLANT
     Dosage: 13 MG DAILY
     Route: 048
     Dates: start: 20081210, end: 20100511

REACTIONS (5)
  - LIVER TRANSPLANT REJECTION [None]
  - CHOLANGITIS SCLEROSING [None]
  - HEPATIC FIBROSIS [None]
  - HEPATIC ENZYME INCREASED [None]
  - LYMPHADENOPATHY [None]
